FAERS Safety Report 25089414 (Version 1)
Quarter: 2025Q1

REPORT INFORMATION
  Report Type: Spontaneous
  Country: US (occurrence: US)
  Receive Date: 20250318
  Receipt Date: 20250318
  Transmission Date: 20250409
  Serious: Yes (Other)
  Sender: ABBVIE
  Company Number: US-ABBVIE-6179624

PATIENT
  Age: 81 Year

DRUGS (1)
  1. REFRESH PLUS [Suspect]
     Active Substance: CARBOXYMETHYLCELLULOSE SODIUM
     Indication: Dry eye
     Route: 047

REACTIONS (4)
  - Keratomileusis [Unknown]
  - Sleep apnoea syndrome [Unknown]
  - Dry mouth [Unknown]
  - Dry eye [Unknown]
